FAERS Safety Report 4345344-7 (Version None)
Quarter: 2004Q2

REPORT INFORMATION
  Report Type: 
  Country: None (occurrence: None)
  Receive Date: 20040420
  Receipt Date: 20030724
  Transmission Date: 20050107
  Serious: No
  Sender: FDA-Public Use
  Company Number: 200312570BCC

PATIENT
  Sex: Female

DRUGS (1)
  1. MYCELEX-7 [Suspect]
     Indication: VAGINAL MYCOSIS
     Dosage: VAGINAL
     Route: 067

REACTIONS (1)
  - DRUG INEFFECTIVE [None]
